FAERS Safety Report 7012808-7 (Version None)
Quarter: 2010Q3

REPORT INFORMATION
  Report Type: 
  Country: None (occurrence: None)
  Receive Date: 20100924
  Receipt Date: 20100917
  Transmission Date: 20110219
  Serious: Yes (Congenital Anomaly)
  Sender: FDA-Public Use
  Company Number: B0668576A

PATIENT
  Sex: Female

DRUGS (2)
  1. PAROXETINE HCL [Suspect]
     Indication: DEPRESSION
     Dosage: 20MG PER DAY
     Route: 048
     Dates: end: 20100101
  2. LACTULOSE [Concomitant]
     Indication: CONSTIPATION
     Route: 048

REACTIONS (3)
  - DEPRESSION [None]
  - DRUG EXPOSURE DURING PREGNANCY [None]
  - PANIC ATTACK [None]
